FAERS Safety Report 8085556-2 (Version None)
Quarter: 2012Q1

REPORT INFORMATION
  Report Type: 
  Country: None (occurrence: None)
  Receive Date: 20120128
  Receipt Date: 20110418
  Transmission Date: 20120608
  Serious: No
  Sender: FDA-Public Use
  Company Number: US-ABBOTT-11P-163-0715289-00

PATIENT
  Age: 36 Year
  Sex: Female

DRUGS (8)
  1. HUMIRA [Suspect]
     Dosage: LOADING DOSE
     Dates: start: 20110217
  2. ASACOL [Concomitant]
     Indication: CROHN'S DISEASE
  3. HUMIRA [Suspect]
     Indication: CROHN'S DISEASE
     Dosage: LOADING DOSE
     Dates: start: 20110203, end: 20110203
  4. PREDNISONE TAB [Concomitant]
     Indication: PRODUCT USED FOR UNKNOWN INDICATION
     Dosage: TAPERING DUE TO REMISSION OF SERIOUS FLARE
  5. HYOSCYAMINE [Concomitant]
     Indication: ABDOMINAL PAIN UPPER
  6. HUMIRA [Suspect]
  7. WELLBUTRIN [Concomitant]
     Indication: CROHN'S DISEASE
  8. WELLBUTRIN [Concomitant]
     Indication: SMOKING CESSATION THERAPY

REACTIONS (9)
  - INJECTION SITE SWELLING [None]
  - OEDEMA PERIPHERAL [None]
  - RASH [None]
  - ABDOMINAL DISTENSION [None]
  - WEIGHT INCREASED [None]
  - INJECTION SITE REACTION [None]
  - INJECTION SITE PAIN [None]
  - INJECTION SITE NODULE [None]
  - INJECTION SITE ERYTHEMA [None]
